FAERS Safety Report 5096194-8 (Version None)
Quarter: 2006Q3

REPORT INFORMATION
  Report Type: 
  Country: None (occurrence: None)
  Receive Date: 20060905
  Receipt Date: 20060608
  Transmission Date: 20061208
  Serious: Yes (Hospitalization, Other)
  Sender: FDA-Public Use
  Company Number: DE-BRISTOL-MYERS SQUIBB COMPANY-13407317

PATIENT
  Age: 63 Year
  Sex: Male
  Weight: 101 kg

DRUGS (2)
  1. KARVEA [Suspect]
     Indication: PORTAL HYPERTENSION
     Dosage: STEP-UP DOSAGE TITRATED UP TO 300 MG/D
     Route: 048
     Dates: start: 20041102, end: 20041116
  2. PROPRANOLOL [Suspect]
     Indication: PORTAL HYPERTENSION
     Route: 048
     Dates: start: 20041013, end: 20041116

REACTIONS (2)
  - BLEEDING VARICOSE VEIN [None]
  - MALLORY-WEISS SYNDROME [None]
